FAERS Safety Report 10362954 (Version 3)
Quarter: 2015Q2

REPORT INFORMATION
  Report Type: Spontaneous
  Country: US (occurrence: US)
  Receive Date: 20140805
  Receipt Date: 20150515
  Transmission Date: 20150821
  Serious: Yes (Other)
  Sender: FDA-Public Use
  Company Number: US-PFIZER INC-2014216683

PATIENT
  Age: 71 Year
  Sex: Female

DRUGS (28)
  1. LYRICA [Concomitant]
     Active Substance: PREGABALIN
     Dosage: 50 MG, 2X/DAY
  2. PREVACID [Concomitant]
     Active Substance: LANSOPRAZOLE
     Dosage: UNK
     Dates: start: 2000
  3. ESTRADIOL. [Concomitant]
     Active Substance: ESTRADIOL
     Dosage: 1 MG, 1X/DAY
  4. MEDROXYPROGESTERONE ACETATE. [Concomitant]
     Active Substance: MEDROXYPROGESTERONE ACETATE
     Dosage: 2.5 MG, 1X/DAY
  5. EXCEDRIN MIGRAINE [Concomitant]
     Active Substance: ACETAMINOPHEN\ASPIRIN\CAFFEINE
     Dosage: 2 WHEN NEEDED
     Dates: start: 2000
  6. ESTRADIOL. [Concomitant]
     Active Substance: ESTRADIOL
     Dosage: UNK
     Dates: start: 2000
  7. AMITIZA [Concomitant]
     Active Substance: LUBIPROSTONE
     Dosage: 8MG, 1-3X DAILY AS NEEDED
  8. PLAQUENIL [Concomitant]
     Active Substance: HYDROXYCHLOROQUINE SULFATE
     Dosage: UNK
  9. VITAMIN D [Concomitant]
     Active Substance: CHOLECALCIFEROL
     Dosage: 2000 IU, DAILY
     Dates: start: 2004
  10. LYRICA [Concomitant]
     Active Substance: PREGABALIN
     Dosage: UNK
     Dates: start: 2009
  11. GLIMEPIRIDE. [Concomitant]
     Active Substance: GLIMEPIRIDE
     Dosage: 1 MG, 1X/DAY
  12. BUMETANIDE. [Concomitant]
     Active Substance: BUMETANIDE
     Dosage: UNK
     Dates: start: 2000
  13. K-DUR 20 [Concomitant]
     Dosage: UNK
     Dates: start: 2000
  14. ZOLOFT [Concomitant]
     Active Substance: SERTRALINE HYDROCHLORIDE
     Dosage: 150 MG, 1X/DAY
  15. LISINOPRIL. [Concomitant]
     Active Substance: LISINOPRIL
     Dosage: 10 MG, 1X/DAY
     Dates: start: 2000
  16. FIORICET [Concomitant]
     Active Substance: ACETAMINOPHEN\BUTALBITAL\CAFFEINE
     Dosage: 1 EVERY 6HRS AS NEEDED
  17. BUMETANIDE. [Concomitant]
     Active Substance: BUMETANIDE
     Dosage: 2 MG, 2X/DAY
     Dates: start: 2000
  18. XANAX [Concomitant]
     Active Substance: ALPRAZOLAM
     Dosage: 50 MG 2/3 DAILY AS NEEDED
     Dates: start: 2000
  19. STOOL SOFTENER [Concomitant]
     Active Substance: DOCUSATE CALCIUM
     Dosage: AS NEEDED
     Dates: start: 2000
  20. PREVACID [Concomitant]
     Active Substance: LANSOPRAZOLE
     Dosage: 30 MG, 2X/DAY
  21. MEDROXYPROGESTERONE ACETATE. [Concomitant]
     Active Substance: MEDROXYPROGESTERONE ACETATE
     Dosage: UNK
     Dates: start: 2000
  22. K-DUR 20 [Concomitant]
     Dosage: 2X/DAY
  23. ZOCOR [Concomitant]
     Active Substance: SIMVASTATIN
     Dosage: 40 MG, 1X/DAY
     Dates: start: 2000
  24. TYLENOL EXTRA STRENGTH [Concomitant]
     Active Substance: ACETAMINOPHEN
     Dosage: DAILY
     Dates: start: 2000
  25. CELEBREX [Suspect]
     Active Substance: CELECOXIB
     Indication: INFLAMMATORY PAIN
     Dosage: 200 MG, 2X/DAY
     Route: 048
     Dates: start: 2005
  26. CELEBREX [Suspect]
     Active Substance: CELECOXIB
     Indication: RHEUMATOID ARTHRITIS
     Dosage: 200 MG, 2X/DAY
     Route: 048
  27. TRAMADOL HYDROCHLORIDE. [Concomitant]
     Active Substance: TRAMADOL HYDROCHLORIDE
     Dosage: 50 MG, (EVERY 4-6 HRS AS NEEDED)
  28. VITAMIN B12 [Concomitant]
     Active Substance: CYANOCOBALAMIN
     Dosage: 2000 IU, DAILY
     Dates: start: 2004

REACTIONS (1)
  - Diabetes mellitus [Recovered/Resolved]

NARRATIVE: CASE EVENT DATE: 2009
